APPROVED DRUG PRODUCT: DAPSONE
Active Ingredient: DAPSONE
Strength: 25MG
Dosage Form/Route: TABLET;ORAL
Application: A204074 | Product #001
Applicant: CHARTWELL RX SCIENCES LLC
Approved: May 10, 2016 | RLD: No | RS: No | Type: DISCN